FAERS Safety Report 9903716 (Version 3)
Quarter: 2014Q2

REPORT INFORMATION
  Report Type: Spontaneous
  Country: SE (occurrence: SE)
  Receive Date: 20140217
  Receipt Date: 20140618
  Transmission Date: 20141212
  Serious: Yes (Other)
  Sender: FDA-Public Use
  Company Number: SE-JNJFOC-20140205784

PATIENT
  Sex: 0

DRUGS (1)
  1. IMODIUM [Suspect]
     Indication: EUPHORIC MOOD
     Route: 065

REACTIONS (5)
  - Drug diversion [Unknown]
  - Drug abuse [Unknown]
  - Intentional product misuse [Unknown]
  - Toxicity to various agents [Unknown]
  - Therapeutic response changed [Unknown]
